FAERS Safety Report 16403002 (Version 1)
Quarter: 2019Q2

REPORT INFORMATION
  Report Type: Spontaneous
  Country: US (occurrence: US)
  Receive Date: 20190607
  Receipt Date: 20190607
  Transmission Date: 20190711
  Serious: Yes (Other)
  Sender: FDA-Public Use
  Company Number: US-GLAXOSMITHKLINE-US2019099177

PATIENT
  Sex: Male

DRUGS (1)
  1. EXCEDRIN EXTRA STRENGTH [Suspect]
     Active Substance: ACETAMINOPHEN\ASPIRIN\CAFFEINE
     Indication: EYE DISORDER
     Dosage: 250 MG, QD, 1 TO 2 TABLETS

REACTIONS (3)
  - Withdrawal syndrome [Unknown]
  - Product use in unapproved indication [Unknown]
  - Loss of consciousness [Unknown]
